FAERS Safety Report 9357902 (Version 2)
Quarter: 2013Q2

REPORT INFORMATION
  Report Type: Spontaneous
  Country: CH (occurrence: CH)
  Receive Date: 20130620
  Receipt Date: 20130627
  Transmission Date: 20140414
  Serious: Yes (Hospitalization)
  Sender: FDA-Public Use
  Company Number: CH-BRISTOL-MYERS SQUIBB COMPANY-19022821

PATIENT
  Age: 83 Year
  Sex: Female

DRUGS (11)
  1. GLUCOPHAGE TABS [Suspect]
     Dosage: FILM COATED TABLETS
     Route: 048
     Dates: end: 20130329
  2. VILDAGLIPTIN [Suspect]
     Dosage: TABLET
     Route: 048
     Dates: end: 20130329
  3. XENETIX [Suspect]
     Dosage: 350 MG/ML VIALS
     Route: 040
     Dates: start: 20130325, end: 20130325
  4. RASILEZ [Suspect]
     Dosage: FILM COATED TABLETS
     Route: 048
     Dates: end: 20130329
  5. HYGROTON [Concomitant]
     Dosage: 25MG TABLET
     Route: 048
     Dates: end: 20130329
  6. ASPIRIN CARDIO [Concomitant]
     Dosage: FIL COATED TABLET?ONGOING
     Route: 048
  7. PLAVIX TABS [Concomitant]
     Dosage: FILM COATED TABLETS
     Route: 048
  8. DILATREND [Concomitant]
     Dosage: FILM COATED TABLETS
     Route: 048
     Dates: end: 20130329
  9. CARDURA [Concomitant]
     Dosage: TABLETS
     Route: 048
     Dates: end: 20130329
  10. SORTIS [Concomitant]
     Dosage: ON AN UNSPECIFIED DATE,DOSE WAS REDUCED TO 10 MG PER DAY
     Route: 048
  11. DOXIUM [Concomitant]
     Dosage: CAPSULE
     Route: 048
     Dates: end: 20130329

REACTIONS (5)
  - Lactic acidosis [Recovered/Resolved]
  - Hyperkalaemia [Recovered/Resolved]
  - Renal failure acute [Recovering/Resolving]
  - Hypoglycaemia [Recovered/Resolved]
  - Vitamin B12 deficiency [Recovering/Resolving]
